FAERS Safety Report 8721258 (Version 3)
Quarter: 2012Q4

REPORT INFORMATION
  Report Type: Report from Study
  Country: US (occurrence: US)
  Receive Date: 20120813
  Receipt Date: 20120924
  Transmission Date: 20130627
  Serious: Yes (Other)
  Sender: FDA-Public Use
  Company Number: US-ABBOTT-12P-163-0965800-00

PATIENT
  Age: 55 None
  Sex: Female

DRUGS (15)
  1. HUMIRA [Suspect]
     Indication: BEHCET^S SYNDROME
     Dates: end: 20120514
  2. NAPROXEN [Concomitant]
     Indication: BACK PAIN
  3. CLARITIN [Concomitant]
     Indication: PRODUCT USED FOR UNKNOWN INDICATION
     Dosage: 10 mg daily
  4. NEURONTIN [Concomitant]
     Indication: FIBROMYALGIA
  5. AMBIEN [Concomitant]
     Indication: INSOMNIA
     Dosage: At bedtime
  6. MIRAPEX [Concomitant]
     Indication: RESTLESS LEGS SYNDROME
  7. LIPITOR [Concomitant]
     Indication: PRODUCT USED FOR UNKNOWN INDICATION
     Dosage: At bedtime
  8. TRAZODONE [Concomitant]
     Indication: PRODUCT USED FOR UNKNOWN INDICATION
  9. VITAMIN D [Concomitant]
     Indication: PRODUCT USED FOR UNKNOWN INDICATION
  10. FLEXERIL [Concomitant]
     Indication: PRODUCT USED FOR UNKNOWN INDICATION
  11. JANUMET [Concomitant]
     Indication: DIABETES MELLITUS
     Dosage: 50/100 mg
  12. TRICOR [Concomitant]
     Indication: PRODUCT USED FOR UNKNOWN INDICATION
     Dosage: At bedtime
  13. CYMBALTA [Concomitant]
     Indication: PRODUCT USED FOR UNKNOWN INDICATION
     Dosage: 90 mg through the day
  14. BENICAR HCTZ [Concomitant]
     Indication: BLOOD PRESSURE
     Dosage: 320/25 mg
  15. LEXAPRO [Concomitant]
     Indication: PRODUCT USED FOR UNKNOWN INDICATION
     Dosage: In the morning

REACTIONS (11)
  - Carpal tunnel syndrome [Unknown]
  - Cough [Recovered/Resolved]
  - Aphonia [Not Recovered/Not Resolved]
  - Injection site pain [Not Recovered/Not Resolved]
  - Post procedural infection [Not Recovered/Not Resolved]
  - Pain in extremity [Not Recovered/Not Resolved]
  - Arthralgia [Not Recovered/Not Resolved]
  - Injection site mass [Recovered/Resolved]
  - Injection site mass [Recovering/Resolving]
  - Incorrect dose administered [Recovered/Resolved]
  - Injection site extravasation [Recovered/Resolved]
